FAERS Safety Report 18216836 (Version 2)
Quarter: 2020Q3

REPORT INFORMATION
  Report Type: Spontaneous
  Country: US (occurrence: US)
  Receive Date: 20200901
  Receipt Date: 20200902
  Transmission Date: 20201103
  Serious: Yes (Other)
  Sender: FDA-Public Use
  Company Number: US-BIOVITRUM-2020US4572

PATIENT
  Age: 13 Month
  Sex: Female

DRUGS (1)
  1. ANAKINRA [Suspect]
     Active Substance: ANAKINRA
     Indication: STILL^S DISEASE
     Dates: start: 2017

REACTIONS (6)
  - Interstitial lung disease [Unknown]
  - Pyrexia [Unknown]
  - Erythema [Unknown]
  - Oedema peripheral [Unknown]
  - Pain in extremity [Unknown]
  - Off label use [Recovered/Resolved]

NARRATIVE: CASE EVENT DATE: 201707
